FAERS Safety Report 4586676-7 (Version None)
Quarter: 2005Q1

REPORT INFORMATION
  Report Type: 
  Country: None (occurrence: None)
  Receive Date: 20050218
  Receipt Date: 20041208
  Transmission Date: 20050727
  Serious: Yes (Other)
  Sender: FDA-Public Use
  Company Number: US-BRISTOL-MYERS SQUIBB COMPANY-12788881

PATIENT
  Sex: Male

DRUGS (3)
  1. TAXOL [Suspect]
     Route: 042
     Dates: start: 20041207, end: 20041207
  2. DECADRON [Concomitant]
     Indication: PREMEDICATION
     Dates: start: 20041207, end: 20041207
  3. BENADRYL [Concomitant]
     Indication: PREMEDICATION
     Dates: start: 20041207, end: 20041207

REACTIONS (4)
  - DYSPNOEA [None]
  - EYE DISORDER [None]
  - FLUSHING [None]
  - SUFFOCATION FEELING [None]
